FAERS Safety Report 10548111 (Version 1)
Quarter: 2014Q4

REPORT INFORMATION
  Report Type: Spontaneous
  Country: US (occurrence: None)
  Receive Date: 20141027
  Receipt Date: 20141027
  Transmission Date: 20150529
  Serious: Yes (Other)
  Sender: FDA-Public Use
  Company Number: None

PATIENT
  Age: 46 Year
  Sex: Female
  Weight: 56.7 kg

DRUGS (1)
  1. VENLAFAXINE HYDROCHLORIDE. [Suspect]
     Active Substance: VENLAFAXINE HYDROCHLORIDE
     Indication: DEPRESSION
     Dosage: 2 PILLS
     Route: 048

REACTIONS (11)
  - Speech disorder [None]
  - Anxiety [None]
  - Hypersomnia [None]
  - Bradyphrenia [None]
  - Product quality issue [None]
  - Dizziness [None]
  - Headache [None]
  - Sleep attacks [None]
  - Vertigo [None]
  - Fatigue [None]
  - Product lot number issue [None]

NARRATIVE: CASE EVENT DATE: 20141015
